FAERS Safety Report 10533712 (Version 1)
Quarter: 2014Q4

REPORT INFORMATION
  Report Type: Spontaneous
  Country: US (occurrence: US)
  Receive Date: 20141022
  Receipt Date: 20141022
  Transmission Date: 20150529
  Serious: Yes (Hospitalization, Other)
  Sender: FDA-Public Use
  Company Number: US-JNJFOC-20141006056

PATIENT

DRUGS (2)
  1. DOXORUBICIN [Suspect]
     Active Substance: DOXORUBICIN
     Indication: SARCOMA
     Dosage: ON DAY 1 OF EACH 21-DAY CYCLE
     Route: 040
  2. DEXRAZOXANE. [Suspect]
     Active Substance: DEXRAZOXANE
     Indication: SARCOMA
     Route: 065

REACTIONS (15)
  - Product use issue [Unknown]
  - White blood cell count decreased [Unknown]
  - Febrile neutropenia [Unknown]
  - Ejection fraction decreased [Unknown]
  - Thrombocytopenia [Unknown]
  - Incorrect route of drug administration [Unknown]
  - Lymphocyte count decreased [Unknown]
  - Pyrexia [Unknown]
  - Nausea [Unknown]
  - Skin toxicity [Unknown]
  - Fatigue [Unknown]
  - Neutropenia [Unknown]
  - Anaemia [Unknown]
  - Abdominal pain [Unknown]
  - Toxicity to various agents [Unknown]
